FAERS Safety Report 4431171-9 (Version None)
Quarter: 2004Q3

REPORT INFORMATION
  Report Type: 
  Country: None (occurrence: None)
  Receive Date: 20040818
  Receipt Date: 20040802
  Transmission Date: 20050211
  Serious: Yes (Other)
  Sender: FDA-Public Use
  Company Number: 200412456GDS

PATIENT
  Age: 25 Year
  Sex: Female

DRUGS (3)
  1. NIFEDIPINE [Suspect]
  2. MAGNESIUM SULFATE [Suspect]
     Indication: TOCOLYSIS
  3. BETAMETHASONE [Concomitant]

REACTIONS (6)
  - BLOOD PRESSURE DECREASED [None]
  - CHEST DISCOMFORT [None]
  - HYPOCALCAEMIA [None]
  - JOINT CONTRACTURE [None]
  - PAIN IN EXTREMITY [None]
  - TETANY [None]
